FAERS Safety Report 9845148 (Version 1)
Quarter: 2014Q1

REPORT INFORMATION
  Report Type: Spontaneous
  Country: US (occurrence: US)
  Receive Date: 20140127
  Receipt Date: 20140127
  Transmission Date: 20141002
  Serious: Yes (Hospitalization)
  Sender: FDA-Public Use
  Company Number: US-MALLINCKRODT-T201400346

PATIENT
  Age: 68 Year
  Sex: Female
  Weight: 77.98 kg

DRUGS (2)
  1. FENTANYL TRANSDERMAL SYSTEM [Suspect]
     Indication: CANCER PAIN
     Dosage: 1 PATCH EVERY 72 HOURS
     Route: 062
     Dates: end: 20140104
  2. FENTANYL TRANSDERMAL SYSTEM [Suspect]
     Dosage: TWO 50 UG/HR PATCHES EVERY 72 HOURS (100 UG/HR)
     Route: 062
     Dates: start: 201401

REACTIONS (3)
  - Bacterial infection [Recovered/Resolved]
  - Off label use [Unknown]
  - Drug ineffective [Recovered/Resolved]
